FAERS Safety Report 15372792 (Version 5)
Quarter: 2019Q1

REPORT INFORMATION
  Report Type: Report from Study
  Country: BR (occurrence: BR)
  Receive Date: 20180912
  Receipt Date: 20190308
  Transmission Date: 20190417
  Serious: Yes (Hospitalization, Other)
  Sender: FDA-Public Use
  Company Number: BR-ROCHE-2181729

PATIENT
  Sex: Male
  Weight: 74 kg

DRUGS (2)
  1. OMEPRAZOLE. [Concomitant]
     Active Substance: OMEPRAZOLE
  2. ESBRIET [Suspect]
     Active Substance: PIRFENIDONE
     Indication: IDIOPATHIC PULMONARY FIBROSIS
     Dosage: 3 CAPSULES
     Route: 065

REACTIONS (10)
  - Photosensitivity reaction [Unknown]
  - Hypersensitivity [Not Recovered/Not Resolved]
  - Pruritus [Unknown]
  - Dependence on oxygen therapy [Not Recovered/Not Resolved]
  - Fatigue [Not Recovered/Not Resolved]
  - Pulmonary fibrosis [Recovered/Resolved]
  - Rash erythematous [Unknown]
  - Dermatitis allergic [Recovered/Resolved]
  - Dyspnoea [Not Recovered/Not Resolved]
  - Dermatitis allergic [Recovering/Resolving]
